FAERS Safety Report 9353802 (Version 2)
Quarter: 2013Q3

REPORT INFORMATION
  Report Type: Spontaneous
  Country: US (occurrence: US)
  Receive Date: 20130618
  Receipt Date: 20130730
  Transmission Date: 20140515
  Serious: Yes (Hospitalization)
  Sender: FDA-Public Use
  Company Number: US-UCBSA-069522

PATIENT
  Age: 85 Year
  Sex: Female
  Weight: 59 kg

DRUGS (9)
  1. CIMZIA [Suspect]
     Indication: CROHN^S DISEASE
     Dosage: NUMBER OF DOSES: 2/200 EACH
     Route: 058
     Dates: start: 20111111
  2. MERCAPTOPURINE [Suspect]
     Indication: CROHN^S DISEASE
     Route: 048
     Dates: start: 201206
  3. PROTONIC [Concomitant]
     Indication: GASTROOESOPHAGEAL REFLUX DISEASE
     Route: 048
     Dates: start: 2010
  4. PROTONIC [Concomitant]
     Indication: GASTROOESOPHAGEAL REFLUX DISEASE
     Route: 048
     Dates: start: 2010
  5. ZOFRAN [Concomitant]
     Indication: ABDOMINAL DISCOMFORT
     Dosage: DAILY DOSE 4 MG
     Dates: start: 201211
  6. ARANESP [Concomitant]
     Dosage: 500 MCG/ML
  7. MIRALAX [Concomitant]
     Indication: CONSTIPATION
     Dosage: 17 G/DOSE QHS
     Route: 048
  8. TYLENOL [Concomitant]
     Route: 048
  9. VITAMIN D3 [Concomitant]
     Route: 048

REACTIONS (1)
  - Anaemia macrocytic [Not Recovered/Not Resolved]
